FAERS Safety Report 23363287 (Version 2)
Quarter: 2024Q1

REPORT INFORMATION
  Report Type: Spontaneous
  Country: US (occurrence: None)
  Receive Date: 20240103
  Receipt Date: 20240216
  Transmission Date: 20240410
  Serious: Yes (Hospitalization, Other)
  Sender: FDA-Public Use
  Company Number: 2023A294720

PATIENT

DRUGS (2)
  1. IMFINZI [Suspect]
     Active Substance: DURVALUMAB
     Indication: Hepatic cancer
     Dates: start: 20231201
  2. IMJUDO [Concomitant]
     Active Substance: TREMELIMUMAB\TREMELIMUMAB-ACTL
     Indication: Hepatic cancer
     Dates: start: 20231201

REACTIONS (12)
  - Heart rate increased [Unknown]
  - Hepatic cancer metastatic [Unknown]
  - Cardiac disorder [Unknown]
  - Myocardial necrosis marker increased [Unknown]
  - Electrocardiogram abnormal [Unknown]
  - Photophobia [Unknown]
  - Asthenia [Unknown]
  - Feeding disorder [Unknown]
  - Jaundice [Recovering/Resolving]
  - Somnolence [Unknown]
  - Eyelid ptosis [Unknown]
  - Adverse drug reaction [Unknown]
